FAERS Safety Report 24875713 (Version 1)
Quarter: 2025Q1

REPORT INFORMATION
  Report Type: Spontaneous
  Country: CN (occurrence: CN)
  Receive Date: 20250122
  Receipt Date: 20250122
  Transmission Date: 20250408
  Serious: Yes (Hospitalization)
  Sender: AMGEN
  Company Number: CN-AMGEN-CHNSP2025011728

PATIENT
  Age: 4 Year
  Sex: Male
  Weight: 15.3 kg

DRUGS (2)
  1. BLINCYTO [Suspect]
     Active Substance: BLINATUMOMAB
     Indication: Acute lymphocytic leukaemia
     Dosage: 10 MICROGRAM, QD, DRIP
     Route: 040
     Dates: start: 20241221, end: 20250101
  2. SODIUM CHLORIDE [Concomitant]
     Active Substance: SODIUM CHLORIDE
     Dosage: 94 MILLILITER, QD, DRIP
     Route: 040
     Dates: start: 20241221, end: 20250101

REACTIONS (4)
  - Syncope [Recovering/Resolving]
  - Epilepsy [Recovering/Resolving]
  - Seizure [Recovering/Resolving]
  - Pyrexia [Recovering/Resolving]

NARRATIVE: CASE EVENT DATE: 20241228
